FAERS Safety Report 25731388 (Version 1)
Quarter: 2025Q3

REPORT INFORMATION
  Report Type: Spontaneous
  Country: US (occurrence: None)
  Receive Date: 20250827
  Receipt Date: 20250827
  Transmission Date: 20251021
  Serious: Yes (Death, Hospitalization)
  Sender: FDA-CTU
  Company Number: None

PATIENT
  Age: 69 Year
  Sex: Male

DRUGS (2)
  1. RIVAROXABAN [Suspect]
     Active Substance: RIVAROXABAN
     Indication: Atrial fibrillation
     Route: 048
     Dates: start: 20240916, end: 20250407
  2. ASPIRIN 81MG [Suspect]
     Active Substance: ASPIRIN
     Dosage: FREQUENCY : EVERY 12 HOURS;?
     Route: 048
     Dates: start: 20170323

REACTIONS (3)
  - Fall [None]
  - Head injury [None]
  - Cerebral haemorrhage [None]

NARRATIVE: CASE EVENT DATE: 20250404
